FAERS Safety Report 5226966-8 (Version None)
Quarter: 2007Q1

REPORT INFORMATION
  Report Type: 
  Country: None (occurrence: None)
  Receive Date: 20070201
  Receipt Date: 20070201
  Transmission Date: 20070707
  Serious: Yes (Hospitalization)
  Sender: FDA-Public Use
  Company Number: None

PATIENT
  Sex: Male
  Weight: 95.709 kg

DRUGS (1)
  1. TOPAMAX [Suspect]
     Indication: STATUS EPILEPTICUS
     Dosage: 300MG BID
     Dates: start: 19950101, end: 20070101

REACTIONS (1)
  - NEPHROLITHIASIS [None]
